FAERS Safety Report 10256476 (Version 1)
Quarter: 2014Q2

REPORT INFORMATION
  Report Type: Report from Study
  Country: SE (occurrence: SE)
  Receive Date: 20140624
  Receipt Date: 20140624
  Transmission Date: 20141212
  Serious: Yes (Hospitalization)
  Sender: FDA-Public Use
  Company Number: SE-JNJFOC-20130214271

PATIENT
  Age: 87 Year
  Sex: Female
  Weight: 63 kg

DRUGS (18)
  1. XARELTO [Suspect]
     Indication: ATRIAL FIBRILLATION
     Route: 048
     Dates: start: 20130321
  2. XARELTO [Suspect]
     Indication: ATRIAL FIBRILLATION
     Route: 048
     Dates: start: 20121121, end: 20130206
  3. XARELTO [Suspect]
     Indication: CEREBROVASCULAR ACCIDENT PROPHYLAXIS
     Route: 048
     Dates: start: 20121121, end: 20130206
  4. XARELTO [Suspect]
     Indication: CEREBROVASCULAR ACCIDENT PROPHYLAXIS
     Route: 048
     Dates: start: 20130321
  5. CALCICHEW-D3 FORTE [Concomitant]
     Route: 065
     Dates: start: 20120711
  6. FURIX [Concomitant]
     Route: 065
     Dates: start: 20120711
  7. SIMVASTATIN [Concomitant]
     Route: 065
     Dates: start: 20121121
  8. GANFORT [Concomitant]
     Route: 065
     Dates: start: 20120711
  9. DIGOXIN [Concomitant]
     Route: 065
     Dates: end: 20130208
  10. SELOKENZOC [Concomitant]
     Route: 065
     Dates: end: 20130208
  11. AMLODIPINE [Concomitant]
     Route: 065
     Dates: end: 20130218
  12. RAMIPRIL [Concomitant]
     Route: 065
     Dates: end: 20121124
  13. CITODON [Concomitant]
     Route: 065
     Dates: start: 20121017, end: 20121129
  14. BISOPROLOL [Concomitant]
     Route: 065
     Dates: start: 20130221
  15. ENALAPRIL [Concomitant]
     Route: 065
     Dates: start: 20130321
  16. ALVEDON [Concomitant]
     Route: 065
     Dates: start: 20130308
  17. FOLACIN [Concomitant]
     Route: 065
     Dates: start: 20130222
  18. METOJECT [Concomitant]
     Route: 065
     Dates: start: 20121119

REACTIONS (5)
  - Syncope [Recovered/Resolved]
  - Head injury [Recovered/Resolved]
  - Traumatic intracranial haemorrhage [Recovered/Resolved]
  - Skull fracture [Recovered/Resolved with Sequelae]
  - Syncope [Recovered/Resolved]
